FAERS Safety Report 24767916 (Version 1)
Quarter: 2024Q4

REPORT INFORMATION
  Report Type: Spontaneous
  Country: US (occurrence: None)
  Receive Date: 20241222
  Receipt Date: 20241222
  Transmission Date: 20250114
  Serious: Yes (Hospitalization)
  Sender: Public
  Company Number: None

PATIENT
  Age: 15 Year
  Sex: Female
  Weight: 60.3 kg

DRUGS (2)
  1. NITROFURANTOIN MONOHYDRATE MACROCRYSTALS [Suspect]
     Active Substance: NITROFURANTOIN\NITROFURANTOIN MONOHYDRATE
     Indication: Urinary tract infection
     Dosage: OTHER QUANTITY : 10 CAPSULE(S);?FREQUENCY : TWICE A DAY;?
     Route: 048
     Dates: start: 20240531, end: 20240604
  2. HYDROCORTISONE [Concomitant]
     Active Substance: HYDROCORTISONE

REACTIONS (18)
  - Swelling of eyelid [None]
  - Headache [None]
  - Fatigue [None]
  - Nausea [None]
  - Feeling cold [None]
  - Facial pain [None]
  - Hypoaesthesia [None]
  - Paraesthesia [None]
  - Ear pain [None]
  - Ear inflammation [None]
  - Glossodynia [None]
  - Muscle twitching [None]
  - Muscle spasms [None]
  - Diplopia [None]
  - Trigeminal neuralgia [None]
  - Vision blurred [None]
  - Heterophoria [None]
  - Abdominal pain lower [None]

NARRATIVE: CASE EVENT DATE: 20240603
